FAERS Safety Report 5752723-X (Version None)
Quarter: 2008Q2

REPORT INFORMATION
  Report Type: 
  Country: None (occurrence: None)
  Receive Date: 20080529
  Receipt Date: 20080521
  Transmission Date: 20081010
  Serious: Yes (Hospitalization)
  Sender: FDA-Public Use
  Company Number: JP-ASTRAZENECA-2008AP03940

PATIENT
  Age: 59 Year
  Sex: Female

DRUGS (2)
  1. ARIMIDEX TABLETS [Suspect]
     Indication: BREAST CANCER
     Route: 048
     Dates: start: 20071011
  2. RADIATION THERAPY [Suspect]
     Dates: start: 20071023, end: 20071127

REACTIONS (1)
  - CRYPTOGENIC ORGANISING PNEUMONIA [None]
